FAERS Safety Report 22064094 (Version 1)
Quarter: 2023Q1

REPORT INFORMATION
  Report Type: Report from Study
  Country: JP (occurrence: JP)
  Receive Date: 20230306
  Receipt Date: 20230306
  Transmission Date: 20230418
  Serious: Yes (Life-Threatening, Other)
  Sender: FDA-Public Use
  Company Number: JP-GSKJP-JP2022JPN141644AA

PATIENT

DRUGS (39)
  1. DAPRODUSTAT [Suspect]
     Active Substance: DAPRODUSTAT
     Indication: Nephrogenic anaemia
     Dosage: 4 MG, QD
     Route: 048
     Dates: start: 20210716, end: 20210731
  2. COMIRNATY [Suspect]
     Active Substance: TOZINAMERAN
     Indication: COVID-19 prophylaxis
     Dosage: UNK
     Dates: start: 20210630, end: 20210630
  3. COMIRNATY [Suspect]
     Active Substance: TOZINAMERAN
     Dosage: UNK
     Dates: start: 20210721, end: 20210721
  4. MIRCERA INJECTION [Concomitant]
     Indication: Nephrogenic anaemia
     Dosage: 50 ?G
     Route: 058
     Dates: start: 20200408, end: 20200408
  5. MIRCERA INJECTION [Concomitant]
     Dosage: 70 ?G, ONCE/MONTH
     Route: 058
     Dates: start: 20200508, end: 20200914
  6. MIRCERA INJECTION [Concomitant]
     Dosage: 100 ?G, ONCE/MONTH
     Route: 058
     Dates: start: 20201019, end: 20201102
  7. MIRCERA INJECTION [Concomitant]
     Dosage: 150 ?G, ONCE/MONTH
     Route: 058
     Dates: start: 20201214, end: 20210405
  8. DARBEPOETIN ALFA [Concomitant]
     Active Substance: DARBEPOETIN ALFA
     Indication: Nephrogenic anaemia
     Dosage: 60 ?G, WE
     Dates: start: 20210424, end: 20210521
  9. DARBEPOETIN ALFA [Concomitant]
     Active Substance: DARBEPOETIN ALFA
     Dosage: 50 ?G, QD
     Dates: start: 20210528, end: 20210528
  10. DARBEPOETIN ALFA [Concomitant]
     Active Substance: DARBEPOETIN ALFA
     Dosage: 80 ?G, WE
     Dates: start: 20210605, end: 20210709
  11. ACETAMINOPHEN [Concomitant]
     Active Substance: ACETAMINOPHEN
     Dosage: 400 MG
  12. COLCHICINE [Concomitant]
     Active Substance: COLCHICINE
     Dosage: 0.5 MG, QD
     Dates: start: 20220714
  13. LIPITOR [Concomitant]
     Active Substance: ATORVASTATIN CALCIUM
     Dosage: 5 MG
     Dates: start: 20210722
  14. FUROSEMIDE [Concomitant]
     Active Substance: FUROSEMIDE
     Dosage: 120 MG
  15. FUROSEMIDE [Concomitant]
     Active Substance: FUROSEMIDE
     Dosage: 80 MG
     Dates: start: 20210722
  16. LANSOPRAZOLE [Concomitant]
     Active Substance: LANSOPRAZOLE
     Dosage: 15 MG
  17. NU-LOTAN [Concomitant]
     Active Substance: LOSARTAN POTASSIUM
     Dosage: 25 MG
     Dates: start: 20220722
  18. ALFAROL [Concomitant]
     Active Substance: ALFACALCIDOL
     Dosage: 0.5 ?G
     Dates: start: 20210722
  19. FERRIC CITRATE ANHYDROUS [Concomitant]
     Active Substance: FERRIC CITRATE ANHYDROUS
     Dosage: 750 MG
     Dates: start: 20210722
  20. SODIUM FERROUS CITRATE [Concomitant]
     Active Substance: SODIUM FERROUS CITRATE
     Dosage: 100 MG
  21. POLAPREZINC [Concomitant]
     Active Substance: POLAPREZINC
     Dosage: 150 MG
     Dates: start: 20210730
  22. LOSARTAN POTASSIUM [Concomitant]
     Active Substance: LOSARTAN POTASSIUM
     Dosage: 25 MG
     Dates: start: 20210731
  23. ATORVASTATIN OD [Concomitant]
     Dosage: 10 MG
     Dates: start: 20210731
  24. FUROSEMIDE [Concomitant]
     Active Substance: FUROSEMIDE
     Dosage: 80 MG
     Dates: start: 20210731
  25. ALFACALCIDOL [Concomitant]
     Active Substance: ALFACALCIDOL
     Dosage: 0.5 ?G
     Dates: start: 20210731
  26. SODIUM FERROUS CITRATE [Concomitant]
     Active Substance: SODIUM FERROUS CITRATE
     Dosage: 100 MG
     Dates: start: 20210731, end: 20210804
  27. POLAPREZINC [Concomitant]
     Active Substance: POLAPREZINC
     Dosage: 150 MG
     Dates: start: 20210731
  28. ASPIRIN [Concomitant]
     Active Substance: ASPIRIN
     Dosage: 100 MG
     Dates: start: 20210731
  29. CLOPIDOGREL BISULFATE [Concomitant]
     Active Substance: CLOPIDOGREL BISULFATE
     Dosage: 75 MG
     Dates: start: 20210731
  30. BISOPROLOL FUMARATE TABLET [Concomitant]
     Dosage: 0.625 MG
     Dates: start: 20210731
  31. LIDOCAINE [Concomitant]
     Active Substance: LIDOCAINE
     Dosage: 6 DF
     Dates: start: 20220802
  32. LIDOCAINE [Concomitant]
     Active Substance: LIDOCAINE
     Dosage: 2 DF
     Dates: start: 20210809
  33. P-TOL [Concomitant]
     Dosage: 1000 MG
     Dates: start: 20210803
  34. HEPARIN SODIUM [Concomitant]
     Active Substance: HEPARIN SODIUM
     Dosage: 15 ML
     Route: 041
     Dates: start: 20210731
  35. SODIUM CHLORIDE [Concomitant]
     Active Substance: SODIUM CHLORIDE
     Dosage: 585 ML
     Route: 041
     Dates: start: 20210731
  36. TERUMO GLUCOSE INJECTION [Concomitant]
     Dosage: 1 L
     Route: 041
     Dates: start: 20220315
  37. ISOTONIC SODIUM CHLORIDE SOLUTION [Concomitant]
     Active Substance: SODIUM CHLORIDE
     Dosage: 500 ML
     Dates: start: 20210731
  38. PENTAZOCINE [Concomitant]
     Active Substance: PENTAZOCINE
     Dosage: 15 MG
     Route: 041
     Dates: start: 20210731
  39. HYDROXYZINE PAMOATE [Concomitant]
     Active Substance: HYDROXYZINE PAMOATE
     Dosage: 25 MG
     Route: 041
     Dates: start: 20210731

REACTIONS (4)
  - Coronary artery stenosis [Recovered/Resolved]
  - Acute myocardial infarction [Recovered/Resolved]
  - Chest discomfort [Unknown]
  - Dyspnoea [Unknown]

NARRATIVE: CASE EVENT DATE: 20210701
